FAERS Safety Report 5323372-2 (Version None)
Quarter: 2007Q2

REPORT INFORMATION
  Report Type: 
  Country: None (occurrence: None)
  Receive Date: 20070514
  Receipt Date: 20070503
  Transmission Date: 20071010
  Serious: Yes (Hospitalization)
  Sender: FDA-Public Use
  Company Number: PHBS2007NL07595

PATIENT
  Age: 32 Year
  Sex: Female
  Weight: 54 kg

DRUGS (2)
  1. RITALIN [Suspect]
     Dosage: 10 MG, TID
     Route: 048
     Dates: start: 19990101
  2. TRILEPTAL [Concomitant]
     Dosage: 1 DF PER TIME
     Route: 065
     Dates: start: 20061001, end: 20060101

REACTIONS (1)
  - EPILEPSY [None]
